FAERS Safety Report 4364872-1 (Version None)
Quarter: 2004Q2

REPORT INFORMATION
  Report Type: 
  Country: None (occurrence: None)
  Receive Date: 20040521
  Receipt Date: 20040503
  Transmission Date: 20050107
  Serious: Yes (Hospitalization, Other)
  Sender: FDA-Public Use
  Company Number: USA040156960

PATIENT
  Age: 70 Year
  Sex: Female
  Weight: 111 kg

DRUGS (1)
  1. FORTEO [Suspect]
     Indication: OSTEOPOROSIS
     Dates: start: 20030801

REACTIONS (5)
  - CORNEAL ULCER [None]
  - EYE INFECTION BACTERIAL [None]
  - EYE INFECTION FUNGAL [None]
  - FUNGAL INFECTION [None]
  - VISUAL ACUITY REDUCED [None]
